FAERS Safety Report 26193459 (Version 1)
Quarter: 2025Q4

REPORT INFORMATION
  Report Type: Spontaneous
  Country: GB (occurrence: GB)
  Receive Date: 20251223
  Receipt Date: 20251223
  Transmission Date: 20260118
  Serious: Yes (Other)
  Sender: MYLAN
  Company Number: GB-MYLANLABS-2025M1109993

PATIENT
  Age: 60 Year
  Sex: Male

DRUGS (8)
  1. CLOZARIL [Suspect]
     Active Substance: CLOZAPINE
     Indication: Schizophrenia
     Dosage: UNK, BID (200MG OM (EVERY MORNING) AND 250MG ON (EVERY NIGHT))
     Dates: start: 20060508, end: 20110803
  2. CLOZARIL [Suspect]
     Active Substance: CLOZAPINE
     Dosage: 450 MILLIGRAM, PM (NOCTE)
  3. CLOZARIL [Suspect]
     Active Substance: CLOZAPINE
     Dosage: UNK, BID (100MG MANE AND 450MG NOCTE)
  4. CLOZARIL [Suspect]
     Active Substance: CLOZAPINE
     Dosage: 450 MILLIGRAM, PM (450MG ON (EVERY NIGHT))
  5. CLOZARIL [Suspect]
     Active Substance: CLOZAPINE
     Dosage: 400 MILLIGRAM, PM (400MG ON (EVERY NIGHT))
  6. AMISULPRIDE [Suspect]
     Active Substance: AMISULPRIDE
     Indication: Product used for unknown indication
     Dosage: 400 MILLIGRAM, BID
     Dates: start: 201409
  7. AMISULPRIDE [Suspect]
     Active Substance: AMISULPRIDE
     Dosage: 300 MILLIGRAM, BID (DOSE DECREASED TO 300MG BD)
     Dates: start: 20140918
  8. AMISULPRIDE [Suspect]
     Active Substance: AMISULPRIDE
     Dosage: UNK, BID (DOSE FURTHER REDUCED TO 100MG OM AND 200MGON)
     Dates: start: 20150817

REACTIONS (1)
  - Hyperprolactinaemia [Unknown]

NARRATIVE: CASE EVENT DATE: 20230214
